FAERS Safety Report 6418536-0 (Version None)
Quarter: 2009Q4

REPORT INFORMATION
  Report Type: 
  Country: None (occurrence: None)
  Receive Date: 20091028
  Receipt Date: 20091022
  Transmission Date: 20100525
  Serious: Yes (Hospitalization)
  Sender: FDA-Public Use
  Company Number: FR-SANOFI-SYNTHELABO-A02200902766

PATIENT
  Sex: Male

DRUGS (3)
  1. FLUOROURACIL [Suspect]
     Indication: COLON CANCER
     Dosage: 2100 MG + 700 MG ONCE DAILY
     Route: 041
     Dates: start: 20090105, end: 20090105
  2. ELVORINE [Suspect]
     Indication: COLON CANCER
     Route: 041
     Dates: start: 20090105, end: 20090105
  3. ELOXATIN [Suspect]
     Indication: COLON CANCER
     Route: 041
     Dates: start: 20090105, end: 20090105

REACTIONS (1)
  - HYPOVOLAEMIC SHOCK [None]
